FAERS Safety Report 8807561 (Version 1)
Quarter: 2012Q4

REPORT INFORMATION
  Report Type: 
  Country: US (occurrence: US)
  Receive Date: 20120925
  Receipt Date: 20120925
  Transmission Date: 20130627
  Serious: No
  Sender: FDA-Public Use
  Company Number: US-FOUGERA-2012FO001061

PATIENT
  Sex: Female
  Weight: 70.31 kg

DRUGS (9)
  1. LIDOCAINE + PRILOCAINE [Suspect]
     Indication: DEPILATION
     Route: 061
  2. VITAMIN D NOS [Concomitant]
     Indication: VITAMIN D DEFICIENCY
     Route: 048
  3. LOVASTATIN [Concomitant]
     Indication: BLOOD CHOLESTEROL
     Route: 048
  4. LEVOTHYROXIN [Concomitant]
     Indication: THYROID DISORDER
     Route: 048
  5. CITRUS X PARADISI JUICE [Concomitant]
     Indication: PROPHYLAXIS
     Route: 048
  6. PRESERVISION [Concomitant]
     Indication: EYE DISORDER
     Route: 048
  7. CO Q 10 [Concomitant]
     Indication: PROPHYLAXIS
     Route: 048
  8. OMEGA 3 /06816701/ [Concomitant]
     Indication: MEDICAL DIET
     Route: 048
  9. CINNAMON /01647501/ [Concomitant]
     Indication: PRODUCT USED FOR UNKNOWN INDICATION

REACTIONS (1)
  - Drug ineffective [Not Recovered/Not Resolved]
